FAERS Safety Report 8869996 (Version 1)
Quarter: 2012Q4

REPORT INFORMATION
  Report Type: 
  Country: US (occurrence: US)
  Receive Date: 20121026
  Receipt Date: 20121026
  Transmission Date: 20130627
  Serious: No
  Sender: FDA-Public Use
  Company Number: US-AMGEN-USASP2012043825

PATIENT
  Age: 62 Year
  Sex: Female
  Weight: 111.11 kg

DRUGS (6)
  1. ENBREL [Suspect]
     Indication: PRODUCT USED FOR UNKNOWN INDICATION
     Dosage: 50 mg, qwk
     Route: 058
  2. LEVOTHYROXIN [Concomitant]
     Dosage: 125 mug, UNK
  3. MULTIPLE VITAMINS [Concomitant]
  4. FISH OIL [Concomitant]
  5. ASPIRIN [Concomitant]
     Dosage: 81 mg, UNK
  6. CALCIUM [Concomitant]
     Dosage: 500 UNK, UNK

REACTIONS (2)
  - Injection site erythema [Recovered/Resolved]
  - Injection site reaction [Recovered/Resolved]
